FAERS Safety Report 11705400 (Version 2)
Quarter: 2015Q4

REPORT INFORMATION
  Report Type: Report from Study
  Country: DE (occurrence: DE)
  Receive Date: 20151106
  Receipt Date: 20151130
  Transmission Date: 20160304
  Serious: Yes (Other)
  Sender: FDA-Public Use
  Company Number: DE-ABBVIE-15K-062-1494906-00

PATIENT
  Age: 23 Year
  Sex: Female

DRUGS (1)
  1. HUMIRA [Suspect]
     Active Substance: ADALIMUMAB
     Indication: CROHN^S DISEASE
     Route: 058

REACTIONS (4)
  - Fistula [Recovered/Resolved]
  - Small intestinal stenosis [Recovered/Resolved]
  - Large intestinal stenosis [Recovered/Resolved]
  - Stenosis [Not Recovered/Not Resolved]

NARRATIVE: CASE EVENT DATE: 20110118
